FAERS Safety Report 9001747 (Version 1)
Quarter: 2013Q1

REPORT INFORMATION
  Report Type: Spontaneous
  Country: CH (occurrence: CH)
  Receive Date: 20130107
  Receipt Date: 20130107
  Transmission Date: 20140127
  Serious: Yes (Other)
  Sender: FDA-Public Use
  Company Number: CH-JNJFOC-20130101737

PATIENT
  Age: 11 Year
  Sex: Male

DRUGS (2)
  1. ZYRTEC [Suspect]
     Indication: ANTIALLERGIC THERAPY
     Dosage: 5 MG QD, HALF TABLET
     Route: 048
     Dates: start: 20121006, end: 2012
  2. ZYRTEC [Suspect]
     Indication: PROPHYLAXIS OF NAUSEA AND VOMITING
     Dosage: 5 MG QD, HALF TABLET
     Route: 048
     Dates: start: 20121006, end: 2012

REACTIONS (7)
  - Dysarthria [Recovered/Resolved]
  - Amnesia [Recovered/Resolved]
  - Abnormal behaviour [Recovered/Resolved]
  - Dizziness [Recovered/Resolved]
  - Headache [Recovered/Resolved]
  - Off label use [Unknown]
  - Wrong technique in drug usage process [None]
